FAERS Safety Report 9974945 (Version 1)
Quarter: 2014Q1

REPORT INFORMATION
  Report Type: Report from Study
  Country: US (occurrence: US)
  Receive Date: 20140306
  Receipt Date: 20140306
  Transmission Date: 20141002
  Serious: No
  Sender: FDA-Public Use
  Company Number: US-ABBVIE-13P-163-1161439-00

PATIENT
  Age: 62 Year
  Sex: Female

DRUGS (4)
  1. HUMIRA [Suspect]
     Indication: CROHN^S DISEASE
     Dates: start: 20131004, end: 20131004
  2. HUMIRA [Suspect]
     Dates: start: 20131018, end: 20131018
  3. SYNTHROID [Concomitant]
     Indication: THYROIDECTOMY
     Dosage: 137MCG DAILY
  4. CELEXA [Concomitant]
     Indication: ANXIETY
     Dosage: 20MG DAILY

REACTIONS (3)
  - Drug ineffective [Not Recovered/Not Resolved]
  - Arthralgia [Not Recovered/Not Resolved]
  - Bone pain [Not Recovered/Not Resolved]
